FAERS Safety Report 26154468 (Version 1)
Quarter: 2025Q4

REPORT INFORMATION
  Report Type: Spontaneous
  Country: US (occurrence: US)
  Receive Date: 20251215
  Receipt Date: 20251215
  Transmission Date: 20260117
  Serious: No
  Sender: ALVOGEN
  Company Number: None

PATIENT

DRUGS (1)
  1. LISDEXAMFETAMINE [Suspect]
     Active Substance: LISDEXAMFETAMINE
     Indication: Product used for unknown indication
     Route: 048
     Dates: start: 2025

REACTIONS (4)
  - Drug effect less than expected [Unknown]
  - Therapeutic response changed [Unknown]
  - Product substitution issue [Unknown]
  - Intentional dose omission [Unknown]

NARRATIVE: CASE EVENT DATE: 20250101
